FAERS Safety Report 6035804-5 (Version None)
Quarter: 2009Q1

REPORT INFORMATION
  Report Type: 
  Country: None (occurrence: None)
  Receive Date: 20090113
  Receipt Date: 20090102
  Transmission Date: 20090719
  Serious: Yes (Hospitalization)
  Sender: FDA-Public Use
  Company Number: FR-PFIZER INC-2009151769

PATIENT

DRUGS (3)
  1. ARTHROTEC [Suspect]
     Indication: BACK PAIN
     Dosage: UNK
     Route: 048
     Dates: start: 20080923, end: 20081002
  2. KARDEGIC [Suspect]
     Indication: CARDIOMYOPATHY
     Route: 048
  3. KARDEGIC [Suspect]
     Route: 048

REACTIONS (1)
  - DIVERTICULITIS [None]
